FAERS Safety Report 13335328 (Version 1)
Quarter: 2017Q1

REPORT INFORMATION
  Report Type: Spontaneous
  Country: US (occurrence: US)
  Receive Date: 20170314
  Receipt Date: 20170314
  Transmission Date: 20170428
  Serious: No
  Sender: FDA-Public Use
  Company Number: US-GALDERMA-US16004530

PATIENT
  Age: 46 Year
  Sex: Female

DRUGS (4)
  1. TRI-LUMA [Suspect]
     Active Substance: FLUOCINOLONE ACETONIDE\HYDROQUINONE\TRETINOIN
     Route: 061
     Dates: start: 201606, end: 201606
  2. UNKNOWN SUN TAN LOTION [Concomitant]
     Indication: PROPHYLAXIS AGAINST SOLAR RADIATION
     Route: 061
  3. TRI-LUMA [Suspect]
     Active Substance: FLUOCINOLONE ACETONIDE\HYDROQUINONE\TRETINOIN
     Indication: CHLOASMA
     Route: 061
     Dates: start: 201606, end: 201606
  4. TRI-LUMA [Suspect]
     Active Substance: FLUOCINOLONE ACETONIDE\HYDROQUINONE\TRETINOIN
     Route: 061
     Dates: start: 201606, end: 201606

REACTIONS (4)
  - Intentional product misuse [Recovered/Resolved]
  - Skin sensitisation [Recovered/Resolved]
  - Erythema [Recovered/Resolved]
  - Intentional overdose [Recovered/Resolved]

NARRATIVE: CASE EVENT DATE: 201606
